FAERS Safety Report 25484639 (Version 1)
Quarter: 2025Q2

REPORT INFORMATION
  Report Type: Spontaneous
  Country: US (occurrence: None)
  Receive Date: 20250626
  Receipt Date: 20250626
  Transmission Date: 20250716
  Serious: Yes (Hospitalization)
  Sender: FDA-CTU
  Company Number: None

PATIENT
  Age: 36 Year
  Sex: Male
  Weight: 83.25 kg

DRUGS (3)
  1. SERMORELIN ACETATE [Suspect]
     Active Substance: SERMORELIN ACETATE
     Indication: Growth hormone deficiency
     Route: 058
     Dates: start: 20250619, end: 20250619
  2. BPC 157 [Concomitant]
  3. GHK-Cu [Concomitant]

REACTIONS (11)
  - Hypersensitivity [None]
  - Heart rate decreased [None]
  - Blood pressure decreased [None]
  - Hyperhidrosis [None]
  - Flushing [None]
  - Vision blurred [None]
  - Immobile [None]
  - Loss of consciousness [None]
  - Pallor [None]
  - Syncope [None]
  - Anaphylactic shock [None]

NARRATIVE: CASE EVENT DATE: 20250619
